FAERS Safety Report 5698237-7 (Version None)
Quarter: 2008Q2

REPORT INFORMATION
  Report Type: 
  Country: None (occurrence: None)
  Receive Date: 20080408
  Receipt Date: 20080320
  Transmission Date: 20081010
  Serious: Yes (Other)
  Sender: FDA-Public Use
  Company Number: US-PFIZER INC-2008026725

PATIENT
  Sex: Female
  Weight: 48.5 kg

DRUGS (8)
  1. CHANTIX [Suspect]
     Indication: SMOKING CESSATION THERAPY
  2. ANTIHYPERTENSIVES [Concomitant]
  3. ALL OTHER THERAPEUTIC PRODUCTS [Concomitant]
  4. DIURETICS [Concomitant]
     Indication: FLUID RETENTION
  5. POTASSIUM CHLORIDE [Concomitant]
  6. ACETYLSALICYLIC ACID SRT [Concomitant]
  7. SPIRIVA [Concomitant]
  8. ALBUTEROL [Concomitant]

REACTIONS (3)
  - FLATULENCE [None]
  - PNEUMONIA [None]
  - TREMOR [None]
